FAERS Safety Report 18535469 (Version 1)
Quarter: 2020Q4

REPORT INFORMATION
  Report Type: Spontaneous
  Country: US (occurrence: US)
  Receive Date: 20201123
  Receipt Date: 20201123
  Transmission Date: 20210114
  Serious: No
  Sender: FDA-Public Use
  Company Number: US-ROCHE-2555539

PATIENT
  Age: 53 Year
  Sex: Female
  Weight: 47.67 kg

DRUGS (2)
  1. TYLENOL [Concomitant]
     Active Substance: ACETAMINOPHEN
     Indication: PYREXIA
     Dosage: TOOK TWO TABS; ONGOING: UNKNOWN
     Route: 048
     Dates: start: 20200218
  2. TAMIFLU [Suspect]
     Active Substance: OSELTAMIVIR PHOSPHATE
     Indication: INFLUENZA
     Dosage: ONE TAKE CAPSULE ;ONGOING: UNKNOWN
     Route: 048
     Dates: start: 20200218

REACTIONS (3)
  - Headache [Unknown]
  - Pyrexia [Unknown]
  - Pain [Unknown]

NARRATIVE: CASE EVENT DATE: 20200218
